FAERS Safety Report 9513942 (Version 5)
Quarter: 2013Q4

REPORT INFORMATION
  Report Type: Report from Study
  Country: US (occurrence: US)
  Receive Date: 20130910
  Receipt Date: 20131115
  Transmission Date: 20140711
  Serious: Yes (Hospitalization, Other)
  Sender: FDA-Public Use
  Company Number: US-VERTEX PHARMACEUTICALS INC-2013-009282

PATIENT
  Age: 61 Year
  Sex: Male
  Weight: 58.96 kg

DRUGS (3)
  1. VX-950 (TELAPREVIR) [Suspect]
     Indication: HEPATITIS C
     Dosage: 750 MG, TID
     Route: 048
     Dates: start: 20130831, end: 20131010
  2. RIBAVIRIN [Suspect]
     Indication: HEPATITIS C
     Dosage: 400MG QAM, 600MG QPM
     Route: 048
     Dates: start: 20130831, end: 20131010
  3. PEGASYS [Suspect]
     Indication: HEPATITIS C
     Dosage: 180 ?G, QW
     Route: 058
     Dates: start: 20130831, end: 20131010

REACTIONS (12)
  - Asthenia [Not Recovered/Not Resolved]
  - Fatigue [Not Recovered/Not Resolved]
  - Loss of consciousness [Unknown]
  - Anaemia [Unknown]
  - Decreased appetite [Not Recovered/Not Resolved]
  - Influenza like illness [Not Recovered/Not Resolved]
  - Inappropriate schedule of drug administration [Unknown]
  - Renal disorder [Unknown]
  - Renal impairment [Not Recovered/Not Resolved]
  - Syncope [Recovered/Resolved]
  - Pruritus generalised [Not Recovered/Not Resolved]
  - Rash pruritic [Recovered/Resolved]
